FAERS Safety Report 5109904-8 (Version None)
Quarter: 2006Q3

REPORT INFORMATION
  Report Type: 
  Country: None (occurrence: None)
  Receive Date: 20060921
  Receipt Date: 20060531
  Transmission Date: 20061208
  Serious: Yes (Other)
  Sender: FDA-Public Use
  Company Number: PHNU2006DE02149

PATIENT
  Sex: Male
  Weight: 70 kg

DRUGS (4)
  1. ASPIRIN [Concomitant]
     Indication: HYPONATRAEMIA
  2. DIOVAN [Suspect]
     Indication: HYPERTENSION
     Dosage: 160 MG, QD
     Route: 048
  3. PLAVIX [Concomitant]
     Dosage: 75 MG/D
     Route: 048
  4. BISOPROLOL FUMARATE [Concomitant]
     Indication: HYPERTENSION
     Dosage: 5 MG/D
     Route: 048

REACTIONS (5)
  - BLOOD OSMOLARITY DECREASED [None]
  - CONFUSIONAL STATE [None]
  - HEMIPLEGIA [None]
  - HYPONATRAEMIA [None]
  - URINE OSMOLARITY INCREASED [None]
